FAERS Safety Report 6032305-5 (Version None)
Quarter: 2008Q4

REPORT INFORMATION
  Report Type: 
  Country: None (occurrence: None)
  Receive Date: 20081222
  Receipt Date: 20081110
  Transmission Date: 20090506
  Serious: No
  Sender: FDA-Public Use
  Company Number: US-WYE-H06804908

PATIENT
  Age: 58 Year
  Sex: Female
  Weight: 108.96 kg

DRUGS (10)
  1. PRISTIQ [Suspect]
     Indication: BIPOLAR DISORDER
     Dosage: 50 MG 1X PER 1 DAY, ORAL
     Route: 048
     Dates: start: 20081101
  2. GEODON [Concomitant]
  3. KLONOPIN [Concomitant]
  4. TEGRETOL [Concomitant]
  5. REMERON [Concomitant]
  6. ZOMIG [Concomitant]
  7. FOLIC ACID [Concomitant]
  8. LEVOTHROID [Concomitant]
  9. SINGULAIR [Concomitant]
  10. BYETTA [Concomitant]

REACTIONS (5)
  - ANXIETY [None]
  - HOSTILITY [None]
  - IRRITABILITY [None]
  - TREMOR [None]
  - UNEVALUABLE EVENT [None]
